FAERS Safety Report 22232535 (Version 4)
Quarter: 2023Q2

REPORT INFORMATION
  Report Type: Spontaneous
  Country: JP (occurrence: JP)
  Receive Date: 20230420
  Receipt Date: 20230616
  Transmission Date: 20230722
  Serious: Yes (Death, Life-Threatening, Other)
  Sender: FDA-Public Use
  Company Number: JP-MSD-2304JPN001404J

PATIENT
  Age: 86 Year
  Sex: Male
  Weight: 60 kg

DRUGS (5)
  1. TEMODAL [Suspect]
     Active Substance: TEMOZOLOMIDE
     Indication: Glioblastoma multiforme
     Dosage: 120 MILLIGRAM, QD
     Route: 048
     Dates: start: 20220803, end: 20220825
  2. PREDONINE [Suspect]
     Active Substance: PREDNISOLONE
     Indication: Glioblastoma multiforme
     Dosage: 5 MILLIGRAM, BID
     Route: 048
     Dates: start: 20220713, end: 20220817
  3. PREDONINE [Suspect]
     Active Substance: PREDNISOLONE
     Dosage: 5 MILLIGRAM, QD
     Route: 048
     Dates: start: 20220818, end: 20220821
  4. DECADRON [Suspect]
     Active Substance: DEXAMETHASONE
     Indication: Glioblastoma multiforme
     Dosage: 2 MILLIGRAM, BID
     Route: 048
     Dates: start: 20220905, end: 20220927
  5. SULFAMETHOXAZOLE\TRIMETHOPRIM [Concomitant]
     Active Substance: SULFAMETHOXAZOLE\TRIMETHOPRIM
     Indication: Pneumocystis jirovecii pneumonia
     Dosage: 1T?3/WEEK
     Route: 048
     Dates: start: 20220808, end: 20220927

REACTIONS (4)
  - Lymphopenia [Fatal]
  - Systemic candida [Fatal]
  - Immunosuppression [Fatal]
  - Sepsis [Fatal]

NARRATIVE: CASE EVENT DATE: 20220808
